FAERS Safety Report 22256099 (Version 2)
Quarter: 2023Q2

REPORT INFORMATION
  Report Type: Spontaneous
  Country: CN (occurrence: CN)
  Receive Date: 20230426
  Receipt Date: 20230428
  Transmission Date: 20230721
  Serious: Yes (Hospitalization, Other)
  Sender: FDA-Public Use
  Company Number: CN-TAKEDA-2023TUS037896

PATIENT
  Age: 40 Year
  Sex: Female

DRUGS (4)
  1. LEUPROLIDE ACETATE [Suspect]
     Active Substance: LEUPROLIDE ACETATE
     Indication: Vaginal haemorrhage
     Dosage: 3.75 MILLIGRAM
     Route: 058
     Dates: start: 20181125
  2. TRANEXAMIC ACID [Concomitant]
     Active Substance: TRANEXAMIC ACID
     Indication: Vaginal haemorrhage
     Dosage: 2 GRAM, QD
     Route: 041
     Dates: start: 20181123
  3. BATROXOBIN [Concomitant]
     Active Substance: BATROXOBIN
     Indication: Vaginal haemorrhage
     Dosage: UNK
     Route: 041
     Dates: start: 20181123
  4. CYPROTERONE ACETATE\ETHINYL ESTRADIOL [Concomitant]
     Active Substance: CYPROTERONE ACETATE\ETHINYL ESTRADIOL
     Indication: Vaginal haemorrhage
     Dosage: UNK UNK, QID
     Route: 048
     Dates: start: 20181123

REACTIONS (3)
  - Vaginal haemorrhage [Recovered/Resolved]
  - Shock haemorrhagic [Recovered/Resolved]
  - Product use in unapproved indication [Unknown]

NARRATIVE: CASE EVENT DATE: 20181201
